FAERS Safety Report 24435863 (Version 4)
Quarter: 2025Q1

REPORT INFORMATION
  Report Type: Report from Study
  Country: GR (occurrence: GR)
  Receive Date: 20241015
  Receipt Date: 20250110
  Transmission Date: 20250408
  Serious: Yes (Hospitalization)
  Sender: ABBVIE
  Company Number: GR-ABBVIE-5960686

PATIENT
  Age: 49 Year
  Sex: Female
  Weight: 89 kg

DRUGS (23)
  1. UPADACITINIB [Suspect]
     Active Substance: UPADACITINIB
     Indication: Crohn^s disease
     Route: 048
     Dates: start: 20240912, end: 20241009
  2. UPADACITINIB [Suspect]
     Active Substance: UPADACITINIB
     Indication: Crohn^s disease
     Route: 048
     Dates: start: 20240523, end: 20240822
  3. UPADACITINIB [Suspect]
     Active Substance: UPADACITINIB
     Indication: Crohn^s disease
     Route: 048
     Dates: start: 20240823, end: 20240906
  4. MEDROL [Concomitant]
     Active Substance: METHYLPREDNISOLONE
     Indication: Rheumatoid arthritis
     Route: 048
     Dates: start: 20240726, end: 20240906
  5. MEDROL [Concomitant]
     Active Substance: METHYLPREDNISOLONE
     Indication: Rheumatoid arthritis
     Route: 048
     Dates: start: 20240628, end: 20240704
  6. MEDROL [Concomitant]
     Active Substance: METHYLPREDNISOLONE
     Indication: Rheumatoid arthritis
     Route: 048
     Dates: start: 20240719, end: 20240725
  7. MEDROL [Concomitant]
     Active Substance: METHYLPREDNISOLONE
     Indication: Rheumatoid arthritis
     Route: 048
     Dates: start: 20240705, end: 20240711
  8. MEDROL [Concomitant]
     Active Substance: METHYLPREDNISOLONE
     Indication: Rheumatoid arthritis
     Route: 048
     Dates: start: 20240712, end: 20240718
  9. MEDROL [Concomitant]
     Active Substance: METHYLPREDNISOLONE
     Indication: Rheumatoid arthritis
     Route: 048
     Dates: start: 20240614, end: 20240620
  10. MEDROL [Concomitant]
     Active Substance: METHYLPREDNISOLONE
     Indication: Rheumatoid arthritis
     Route: 048
     Dates: start: 20240607, end: 20240613
  11. MEDROL [Concomitant]
     Active Substance: METHYLPREDNISOLONE
     Indication: Rheumatoid arthritis
     Route: 048
     Dates: start: 20240621, end: 20240627
  12. MEDROL [Concomitant]
     Active Substance: METHYLPREDNISOLONE
     Indication: Rheumatoid arthritis
     Route: 048
     Dates: start: 20240420, end: 20240529
  13. MEDROL [Concomitant]
     Active Substance: METHYLPREDNISOLONE
     Indication: Rheumatoid arthritis
     Route: 048
     Dates: start: 20240530, end: 20240606
  14. MEDROL [Concomitant]
     Active Substance: METHYLPREDNISOLONE
     Indication: Rheumatoid arthritis
     Route: 048
     Dates: start: 20240913
  15. ASPIRIN [Concomitant]
     Active Substance: ASPIRIN
     Indication: Antiphospholipid syndrome
     Route: 048
     Dates: start: 20200825
  16. DIPEN [Concomitant]
     Indication: Hypertension
     Route: 048
     Dates: start: 20230508
  17. MAGURAN [Concomitant]
     Indication: Hypertension
     Route: 048
     Dates: start: 20230224
  18. ESCITALOPRAM [Concomitant]
     Active Substance: ESCITALOPRAM OXALATE
     Indication: Anxiety disorder
     Route: 048
     Dates: start: 20190522
  19. RAMIPRIL [Concomitant]
     Active Substance: RAMIPRIL
     Indication: Hypertension
     Route: 048
     Dates: start: 20230327
  20. ROSUVASTATIN [Concomitant]
     Active Substance: ROSUVASTATIN
     Indication: Hypercholesterolaemia
     Route: 048
     Dates: start: 20210625
  21. LEVOTHYROXINE [Concomitant]
     Active Substance: LEVOTHYROXINE
     Indication: Autoimmune thyroiditis
     Route: 048
     Dates: start: 201903
  22. GLUCOPLUS GENER [Concomitant]
     Indication: Type 2 diabetes mellitus
     Route: 048
     Dates: start: 20190522
  23. CYMBALTA [Concomitant]
     Active Substance: DULOXETINE HYDROCHLORIDE
     Indication: Anxiety disorder
     Route: 048
     Dates: start: 20221004

REACTIONS (1)
  - Ileus paralytic [Recovered/Resolved]

NARRATIVE: CASE EVENT DATE: 20241009
